FAERS Safety Report 8171751-0 (Version None)
Quarter: 2012Q1

REPORT INFORMATION
  Report Type: 
  Country: None (occurrence: None)
  Receive Date: 20120228
  Receipt Date: 20120223
  Transmission Date: 20120608
  Serious: Yes (Death, Hospitalization)
  Sender: FDA-Public Use
  Company Number: US-GLAXOSMITHKLINE-A0889169A

PATIENT
  Age: 49 Year
  Sex: Female
  Weight: 144.1 kg

DRUGS (9)
  1. PRAVASTATIN [Concomitant]
  2. DILTIAZEM HCL [Concomitant]
  3. AVANDIA [Suspect]
     Indication: DIABETES MELLITUS
     Dosage: 4MG PER DAY
     Route: 048
     Dates: start: 20050101, end: 20070501
  4. METOPROLOL [Concomitant]
  5. PROVENTIL [Concomitant]
  6. ADVAIR DISKUS 100/50 [Concomitant]
  7. INSULIN [Concomitant]
  8. PRILOSEC [Concomitant]
  9. DIOVAN [Concomitant]

REACTIONS (4)
  - MYOCARDIAL INFARCTION [None]
  - CARDIAC FAILURE CONGESTIVE [None]
  - GALLBLADDER CANCER [None]
  - METASTASES TO LIVER [None]
